FAERS Safety Report 12393811 (Version 1)
Quarter: 2016Q2

REPORT INFORMATION
  Report Type: Spontaneous
  Country: BR (occurrence: BR)
  Receive Date: 20160523
  Receipt Date: 20160523
  Transmission Date: 20160815
  Serious: Yes (Other)
  Sender: FDA-Public Use
  Company Number: PHHY2016BR070371

PATIENT
  Age: 76 Year
  Sex: Female
  Weight: 90 kg

DRUGS (2)
  1. CODATEN [Suspect]
     Active Substance: CODEINE PHOSPHATE\DICLOFENAC SODIUM
     Indication: OSTEOARTHRITIS
     Dosage: 1 DF, BID
     Route: 048
     Dates: start: 201506, end: 20150707
  2. CODATEN [Suspect]
     Active Substance: CODEINE PHOSPHATE\DICLOFENAC SODIUM
     Dosage: 1 DF, UNK
     Route: 048

REACTIONS (7)
  - Insomnia [Recovered/Resolved]
  - Vision blurred [Unknown]
  - Pain [Recovered/Resolved]
  - Muscle injury [Recovered/Resolved]
  - Road traffic accident [Recovered/Resolved]
  - Cataract [Unknown]
  - Fall [Recovered/Resolved]

NARRATIVE: CASE EVENT DATE: 20150707
